FAERS Safety Report 8579518-6 (Version None)
Quarter: 2012Q3

REPORT INFORMATION
  Report Type: 
  Country: None (occurrence: None)
  Receive Date: 20120808
  Receipt Date: 20120801
  Transmission Date: 20120928
  Serious: Yes (Hospitalization)
  Sender: FDA-Public Use
  Company Number: DE-GLAXOSMITHKLINE-D0076581A

PATIENT
  Sex: Male

DRUGS (3)
  1. ANESTHETIC [Concomitant]
     Indication: FACIAL OPERATION
     Route: 065
  2. ANALGESIC [Concomitant]
     Indication: DENTAL CARE
     Route: 065
  3. DUTASTERIDE/TAMSULOSIN HYDROCHLORIDE [Suspect]
     Route: 065

REACTIONS (3)
  - ABNORMAL FAECES [None]
  - TESTICULAR PAIN [None]
  - MICTURITION DISORDER [None]
